FAERS Safety Report 7626528-9 (Version None)
Quarter: 2011Q3

REPORT INFORMATION
  Report Type: 
  Country: None (occurrence: None)
  Receive Date: 20110721
  Receipt Date: 20110630
  Transmission Date: 20111222
  Serious: Yes (Hospitalization)
  Sender: FDA-Public Use
  Company Number: US-GLAXOSMITHKLINE-A0771659A

PATIENT
  Age: 69 Year
  Sex: Male
  Weight: 115.9 kg

DRUGS (7)
  1. COUMADIN [Concomitant]
  2. AVANDIA [Suspect]
     Indication: DIABETES MELLITUS
     Dosage: 4MG TWICE PER DAY
     Route: 048
     Dates: start: 20010105, end: 20070217
  3. ACCUPRIL [Concomitant]
  4. AXID [Concomitant]
  5. GLYBURIDE [Concomitant]
  6. ZETIA [Concomitant]
  7. LOPRESSOR [Concomitant]

REACTIONS (3)
  - CORONARY ARTERY DISEASE [None]
  - MYOCARDIAL INFARCTION [None]
  - CARDIAC FAILURE CONGESTIVE [None]
